FAERS Safety Report 6581117-2 (Version None)
Quarter: 2010Q1

REPORT INFORMATION
  Report Type: 
  Country: None (occurrence: None)
  Receive Date: 20100215
  Receipt Date: 20100208
  Transmission Date: 20100710
  Serious: Yes (Death, Hospitalization, Other)
  Sender: FDA-Public Use
  Company Number: PHEH2008US04339

PATIENT
  Sex: Female
  Weight: 93.7 kg

DRUGS (11)
  1. AREDIA [Suspect]
  2. ZOMETA [Suspect]
  3. FOSAMAX [Suspect]
  4. GENASENSE [Concomitant]
     Dosage: UNK
  5. THALIDOMIDE [Concomitant]
     Dosage: UNK
  6. DECADRON                                /CAN/ [Concomitant]
     Dosage: UNK
  7. SYNTHROID [Concomitant]
  8. AUGMENTIN                               /SCH/ [Concomitant]
     Dosage: UNK
  9. CHEMOTHERAPEUTICS NOS [Concomitant]
  10. BLOOD CELLS, PACKED HUMAN [Concomitant]
     Dosage: UNK
  11. RADIATION THERAPY [Concomitant]
     Dosage: UNK
     Dates: start: 19990101

REACTIONS (8)
  - ANHEDONIA [None]
  - ANXIETY [None]
  - BREAST CANCER METASTATIC [None]
  - DISABILITY [None]
  - INJURY [None]
  - OSTEONECROSIS [None]
  - PAIN [None]
  - RADICAL MASTECTOMY [None]
